FAERS Safety Report 9250999 (Version 1)
Quarter: 2013Q1

REPORT INFORMATION
  Report Type: Spontaneous
  Country: US (occurrence: None)
  Receive Date: 20130305
  Receipt Date: 20130305
  Transmission Date: 20140127
  Serious: Yes (Hospitalization)
  Sender: FDA-Public Use
  Company Number: 163-21880-12071745

PATIENT
  Age: 53 Year
  Sex: Male

DRUGS (17)
  1. REVLIMID [Suspect]
     Indication: PLASMA CELL MYELOMA
     Dosage: 1 IN 1 D
     Route: 048
     Dates: start: 201111
  2. PROVENTIL INHALER (SALBUTAMOL) (INHALANT) [Concomitant]
  3. LEVOFLOXACIN (LEVOFLOXACIN) [Concomitant]
  4. MUPIROCIN (MUPIROCIN) [Concomitant]
  5. PRAVASTATIN (PRAVASTATIN) [Concomitant]
  6. QUINAPRIL (QUINAPRIL) [Concomitant]
  7. LEXAPRO (ESCITALOPRAM OXALATE) [Concomitant]
  8. CITALOPRAM (CITALOPRAM) [Concomitant]
  9. CINNAMON OIL (CINNAMON OIL) [Concomitant]
  10. ACTOS (PIOGLITAZONE) [Concomitant]
  11. PANTOPRAZOLE (PANTOPRAZOLE) [Concomitant]
  12. ONGLYZA (SAXAGLIPTIN HYDROCHLORIDE) [Concomitant]
  13. ALLOPURINOL [Concomitant]
  14. POSS^S HAND CREAM (ALL OTHER NON-THERAPEUTIC PRODUCTS) (CREAM) [Concomitant]
  15. ZEMPLAR (PARICALCITOL) [Concomitant]
  16. NYSTOP (NYSTATIN) [Concomitant]
  17. VITAMIN D (ERGOCALCIFEROL) [Concomitant]

REACTIONS (1)
  - Staphylococcal infection [None]
